FAERS Safety Report 15794135 (Version 2)
Quarter: 2019Q3

REPORT INFORMATION
  Report Type: Spontaneous
  Country: US (occurrence: US)
  Receive Date: 20190107
  Receipt Date: 20190708
  Transmission Date: 20191004
  Serious: No
  Sender: FDA-Public Use
  Company Number: US-MYLANLABS-2018M1093361

PATIENT
  Sex: Female
  Weight: 48 kg

DRUGS (4)
  1. ESTRADIOL VAGINAL CREAM USP [Suspect]
     Active Substance: ESTRADIOL
     Indication: VULVOVAGINAL DRYNESS
     Dosage: 1 PERCENT, 3XW
     Route: 067
  2. VITAMIN D                          /00107901/ [Concomitant]
     Active Substance: ERGOCALCIFEROL
  3. CALCIUM [Concomitant]
     Active Substance: CALCIUM
  4. VITAMIN B [Concomitant]
     Active Substance: VITAMIN B

REACTIONS (1)
  - Incorrect dose administered [Not Recovered/Not Resolved]
